FAERS Safety Report 6149971-6 (Version None)
Quarter: 2009Q2

REPORT INFORMATION
  Report Type: 
  Country: None (occurrence: None)
  Receive Date: 20090409
  Receipt Date: 20090403
  Transmission Date: 20091009
  Serious: Yes (Death)
  Sender: FDA-Public Use
  Company Number: A0777633A

PATIENT
  Age: 55 Year
  Sex: Male
  Weight: 127.3 kg

DRUGS (8)
  1. AVANDIA [Suspect]
     Dosage: 8MG PER DAY
     Route: 048
     Dates: start: 20050101, end: 20070211
  2. HUMALOG [Concomitant]
     Dates: start: 19950101, end: 20070211
  3. LASIX [Concomitant]
     Dates: start: 19950101, end: 20070211
  4. ZETIA [Concomitant]
     Dates: start: 19950101, end: 20070211
  5. ZOCOR [Concomitant]
  6. LIPITOR [Concomitant]
     Dates: start: 19950101, end: 20070211
  7. CRESTOR [Concomitant]
     Dates: start: 19950101, end: 20070211
  8. NITROGLYCERIN [Concomitant]
     Dates: start: 19930101, end: 20070211

REACTIONS (1)
  - CARDIAC FAILURE CONGESTIVE [None]
